FAERS Safety Report 14156266 (Version 1)
Quarter: 2017Q4

REPORT INFORMATION
  Report Type: Spontaneous
  Country: FR (occurrence: FR)
  Receive Date: 20171103
  Receipt Date: 20171103
  Transmission Date: 20180321
  Serious: Yes (Other)
  Sender: FDA-Public Use
  Company Number: FR-AUROBINDO-AUR-APL-2017-42838

PATIENT
  Age: 32 Year
  Sex: Male

DRUGS (2)
  1. IXPRIM [Suspect]
     Active Substance: ACETAMINOPHEN\TRAMADOL HYDROCHLORIDE
     Indication: POST-TRAUMATIC PAIN
     Dosage: 2 DF, UNK
     Route: 048
     Dates: start: 20170920
  2. TRAMADOL ARROW L.P. 150 MG PROLONGED RELEASE TABLETS [Suspect]
     Active Substance: TRAMADOL HYDROCHLORIDE
     Indication: POST-TRAUMATIC PAIN
     Dosage: 1 DF, UNK
     Route: 048
     Dates: start: 20171005

REACTIONS (3)
  - Malaise [Recovered/Resolved]
  - Medication error [Recovered/Resolved]
  - Incorrect dose administered [Recovered/Resolved]

NARRATIVE: CASE EVENT DATE: 20171005
